FAERS Safety Report 8392761-4 (Version None)
Quarter: 2012Q2

REPORT INFORMATION
  Report Type: 
  Country: None (occurrence: None)
  Receive Date: 20120529
  Receipt Date: 20111013
  Transmission Date: 20120825
  Serious: No
  Sender: FDA-Public Use
  Company Number: US-MYLANLABS-2011S1021532

PATIENT
  Age: 61 Year
  Sex: Female

DRUGS (6)
  1. AMITRIPTYLINE HCL [Suspect]
     Indication: INFLAMMATORY PAIN
     Route: 048
     Dates: start: 20110510, end: 20110501
  2. AMITRIPTYLINE HCL [Suspect]
     Indication: INFLAMMATION
     Route: 048
     Dates: start: 20110510, end: 20110501
  3. AMITRIPTYLINE HCL [Suspect]
     Indication: INSOMNIA
     Route: 048
     Dates: start: 20110510, end: 20110501
  4. AMITRIPTYLINE HCL [Suspect]
     Dosage: 1/2 TAB Q2-3 DAYS
     Route: 048
     Dates: start: 20110501, end: 20110501
  5. AMITRIPTYLINE HCL [Suspect]
     Dosage: 1/2 TAB Q2-3 DAYS
     Route: 048
     Dates: start: 20110501, end: 20110501
  6. AMITRIPTYLINE HCL [Suspect]
     Dosage: 1/2 TAB Q2-3 DAYS
     Route: 048
     Dates: start: 20110501, end: 20110501

REACTIONS (5)
  - DRUG INEFFECTIVE FOR UNAPPROVED INDICATION [None]
  - SPINAL PAIN [None]
  - INFLAMMATION [None]
  - RENAL PAIN [None]
  - DRY MOUTH [None]
